FAERS Safety Report 11039776 (Version 1)
Quarter: 2015Q2

REPORT INFORMATION
  Report Type: Spontaneous
  Country: US (occurrence: US)
  Receive Date: 20150416
  Receipt Date: 20150416
  Transmission Date: 20150821
  Serious: No
  Sender: FDA-Public Use
  Company Number: US-ENDO PHARMACEUTICALS INC.-FURO20140022

PATIENT
  Sex: Male

DRUGS (3)
  1. FUROSEMIDE TABLETS 40MG [Suspect]
     Active Substance: FUROSEMIDE
     Indication: POLYURIA
     Route: 048
  2. FUROSEMIDE TABLETS 40MG [Suspect]
     Active Substance: FUROSEMIDE
     Route: 048
  3. DIGOXIN. [Concomitant]
     Active Substance: DIGOXIN
     Indication: PRODUCT USED FOR UNKNOWN INDICATION

REACTIONS (1)
  - Drug effect decreased [Recovered/Resolved]

NARRATIVE: CASE EVENT DATE: 2014
